FAERS Safety Report 5734305-9 (Version None)
Quarter: 2008Q2

REPORT INFORMATION
  Report Type: 
  Country: None (occurrence: None)
  Receive Date: 20080512
  Receipt Date: 20080430
  Transmission Date: 20081010
  Serious: Yes (Hospitalization)
  Sender: FDA-Public Use
  Company Number: JP-BRISTOL-MYERS SQUIBB COMPANY-14183180

PATIENT
  Age: 49 Year
  Sex: Female

DRUGS (2)
  1. ENDOXAN [Suspect]
     Indication: BREAST CANCER
     Route: 065
     Dates: start: 20070314
  2. DOXORUBICIN HCL [Concomitant]
     Dates: start: 20070314

REACTIONS (2)
  - HEPATIC FAILURE [None]
  - PANCYTOPENIA [None]
